FAERS Safety Report 18507359 (Version 1)
Quarter: 2020Q4

REPORT INFORMATION
  Report Type: Spontaneous
  Country: US (occurrence: US)
  Receive Date: 20201116
  Receipt Date: 20201116
  Transmission Date: 20210114
  Serious: Yes (Other)
  Sender: FDA-Public Use
  Company Number: None

PATIENT
  Age: 55 Year
  Sex: Female
  Weight: 59.4 kg

DRUGS (4)
  1. SALONPAS LIDOCAINE PLUS [Suspect]
     Active Substance: BENZYL ALCOHOL\LIDOCAINE HYDROCHLORIDE
     Indication: ARTHRITIS
     Dosage: ?          QUANTITY:1 ^DIMEFUL^;?
     Route: 061
     Dates: start: 20201107, end: 20201110
  2. CENTRUM SILVER [Concomitant]
     Active Substance: MINERALS\VITAMINS
  3. LISINOPRIL. [Concomitant]
     Active Substance: LISINOPRIL
  4. POTASSIUM GLUCONATE SUPPLEMENT [Concomitant]

REACTIONS (1)
  - Contusion [None]

NARRATIVE: CASE EVENT DATE: 20201107
